FAERS Safety Report 9337493 (Version 1)
Quarter: 2013Q2

REPORT INFORMATION
  Report Type: Spontaneous
  Country: CA (occurrence: CA)
  Receive Date: 20130607
  Receipt Date: 20130607
  Transmission Date: 20140414
  Serious: Yes (Disabling, Other)
  Sender: FDA-Public Use
  Company Number: CA-TEVA-410712USA

PATIENT
  Age: 37 Year
  Sex: Female
  Weight: 91 kg

DRUGS (4)
  1. CLONAZEPAM [Suspect]
     Route: 048
  2. DIAZEPAM [Concomitant]
  3. MODAFINIL [Concomitant]
  4. SEROQUEL [Concomitant]

REACTIONS (2)
  - Drug intolerance [Not Recovered/Not Resolved]
  - Thinking abnormal [Not Recovered/Not Resolved]
